FAERS Safety Report 9553274 (Version 1)
Quarter: 2013Q3

REPORT INFORMATION
  Report Type: Spontaneous
  Country: US (occurrence: None)
  Receive Date: 20130924
  Receipt Date: 20130924
  Transmission Date: 20140515
  Serious: Yes (Life-Threatening)
  Sender: FDA-Public Use
  Company Number: None

PATIENT
  Age: 65 None
  Sex: Female
  Weight: 81 kg

DRUGS (3)
  1. WARFARIN [Suspect]
     Indication: DEEP VEIN THROMBOSIS
     Dosage: 10 MG TU/TH, SA/SU 4 DAYS/WEEK PO
     Route: 048
  2. WARFARIN [Suspect]
     Indication: PULMONARY EMBOLISM
     Dosage: 10 MG TU/TH, SA/SU 4 DAYS/WEEK PO
     Route: 048
  3. WARFARIN [Suspect]
     Dosage: 7.5 MG MO/WE/FR, 3 DAYS/WEEK, PO
     Route: 048

REACTIONS (2)
  - International normalised ratio increased [None]
  - Somnolence [None]
